FAERS Safety Report 15211597 (Version 1)
Quarter: 2018Q3

REPORT INFORMATION
  Report Type: Spontaneous
  Country: US (occurrence: US)
  Receive Date: 20180729
  Receipt Date: 20180729
  Transmission Date: 20181010
  Serious: No
  Sender: FDA-Public Use
  Company Number: US-JNJFOC-20180711958

PATIENT
  Age: 29 Year
  Sex: Female
  Weight: 53.52 kg

DRUGS (1)
  1. VISINE A [Suspect]
     Active Substance: NAPHAZOLINE HYDROCHLORIDE\PHENIRAMINE MALEATE
     Indication: OCULAR HYPERAEMIA
     Dosage: 1 GTT IN EACH EYE, ONCE
     Route: 047
     Dates: start: 20180708, end: 20180708

REACTIONS (3)
  - Wrong technique in product usage process [Unknown]
  - Vision blurred [Not Recovered/Not Resolved]
  - Eye irritation [Recovering/Resolving]

NARRATIVE: CASE EVENT DATE: 20180708
